APPROVED DRUG PRODUCT: DEXTROSE 5% AND SODIUM CHLORIDE 0.9%
Active Ingredient: DEXTROSE; SODIUM CHLORIDE
Strength: 5GM/100ML;900MG/100ML
Dosage Form/Route: INJECTABLE;INJECTION
Application: A211211 | Product #001 | TE Code: AP
Applicant: FRESENIUS KABI USA LLC
Approved: Sep 14, 2020 | RLD: No | RS: No | Type: RX